FAERS Safety Report 8799041 (Version 2)
Quarter: 2013Q2

REPORT INFORMATION
  Report Type: Spontaneous
  Country: DK (occurrence: DK)
  Receive Date: 20120920
  Receipt Date: 20130416
  Transmission Date: 20140414
  Serious: Yes (Hospitalization)
  Sender: FDA-Public Use
  Company Number: PHHY2012DK079541

PATIENT
  Age: 76 Year
  Sex: Male

DRUGS (1)
  1. CEFTRIAXONE [Suspect]
     Indication: ESCHERICHIA INFECTION
     Route: 042

REACTIONS (6)
  - Renal failure [Recovered/Resolved]
  - Superinfection fungal [Recovered/Resolved]
  - Pyrexia [Recovered/Resolved]
  - General physical health deterioration [Recovered/Resolved]
  - Candida infection [Recovered/Resolved]
  - Aspergillus infection [Recovered/Resolved]
